FAERS Safety Report 4514085-5 (Version None)
Quarter: 2004Q4

REPORT INFORMATION
  Report Type: 
  Country: None (occurrence: None)
  Receive Date: 20041124
  Receipt Date: 20041105
  Transmission Date: 20050328
  Serious: Yes (Hospitalization, Other)
  Sender: FDA-Public Use
  Company Number: USA041183330

PATIENT
  Sex: Female

DRUGS (11)
  1. CYMBALTA [Suspect]
     Indication: DEPRESSION
     Dosage: 60 MG DAY
  2. LANTUS [Concomitant]
  3. GLUCOPHAGE [Concomitant]
  4. CALCIUM  CARBONAGE W/VITAMIN D NOS [Concomitant]
  5. AMARYL [Concomitant]
  6. RANITIDINE [Concomitant]
  7. HYDROCHLOROTHIAZIDE [Concomitant]
  8. ATENOLOL [Concomitant]
  9. LASIX [Concomitant]
  10. IRON [Concomitant]
  11. ASPIRIN (ACETYLSALIYCYLIC ACID) [Concomitant]

REACTIONS (2)
  - AGITATION [None]
  - CONFUSIONAL STATE [None]
